FAERS Safety Report 24810864 (Version 3)
Quarter: 2025Q2

REPORT INFORMATION
  Report Type: Spontaneous
  Country: US (occurrence: US)
  Receive Date: 20250106
  Receipt Date: 20250515
  Transmission Date: 20250716
  Serious: No
  Sender: INCYTE
  Company Number: US-EVENT-000874

PATIENT

DRUGS (1)
  1. OPZELURA [Suspect]
     Active Substance: RUXOLITINIB PHOSPHATE
     Indication: Dermatitis

REACTIONS (4)
  - Dermatitis [Unknown]
  - Product physical consistency issue [Unknown]
  - Product dose omission issue [Unknown]
  - Off label use [Unknown]
